FAERS Safety Report 7017912-5 (Version None)
Quarter: 2010Q3

REPORT INFORMATION
  Report Type: 
  Country: None (occurrence: None)
  Receive Date: 20100928
  Receipt Date: 20100915
  Transmission Date: 20110219
  Serious: Yes (Hospitalization, Other)
  Sender: FDA-Public Use
  Company Number: GB-ELI_LILLY_AND_COMPANY-GB201007003280

PATIENT
  Sex: Female

DRUGS (7)
  1. ZYPREXA [Suspect]
     Dosage: 2.5 MG, UNKNOWN
     Route: 048
  2. LANSOPRAZOLE [Concomitant]
     Dosage: 30 MG, DAILY (1/D)
     Route: 048
  3. CITALOPRAM HYDROBROMIDE [Concomitant]
     Dosage: 16 MG, DAILY (1/D)
     Route: 048
  4. GLICLAZIDE [Concomitant]
     Dosage: 80 MG, 2/D
     Route: 048
  5. IRBESARTAN [Concomitant]
     Dosage: 150 MG, DAILY (1/D)
     Route: 048
  6. METFORMIN [Concomitant]
     Dosage: 1 G, 2/D
     Route: 048
  7. SIMVASTATIN [Concomitant]
     Dosage: 10 MG, DAILY (1/D)
     Route: 048

REACTIONS (2)
  - DYSPHAGIA [None]
  - HOSPITALISATION [None]
